FAERS Safety Report 21953780 (Version 1)
Quarter: 2023Q1

REPORT INFORMATION
  Report Type: Report from Study
  Country: US (occurrence: US)
  Receive Date: 20230204
  Receipt Date: 20230204
  Transmission Date: 20230418
  Serious: Yes (Hospitalization, Other)
  Sender: FDA-Public Use
  Company Number: US-BIOGEN-2016BI00275457

PATIENT
  Sex: Female

DRUGS (11)
  1. AMPYRA [Suspect]
     Active Substance: DALFAMPRIDINE
     Indication: Product used for unknown indication
     Dosage: 10 MILLIGRAM, BID
     Route: 048
     Dates: start: 2015
  2. TYSABRI [Suspect]
     Active Substance: NATALIZUMAB
     Indication: Multiple sclerosis
     Dosage: UNK
     Route: 042
     Dates: start: 202011, end: 202110
  3. TYSABRI [Suspect]
     Active Substance: NATALIZUMAB
     Dosage: 300 MILLIGRAM
     Route: 042
     Dates: start: 20160114, end: 201907
  4. PROVENTIL [Concomitant]
     Active Substance: ALBUTEROL
     Indication: Product used for unknown indication
     Dosage: UNK
     Route: 055
  5. DICLOFENAC [Concomitant]
     Active Substance: DICLOFENAC
     Indication: Product used for unknown indication
     Dosage: UNK
     Route: 061
     Dates: start: 20190827
  6. LIDODERM [Concomitant]
     Active Substance: LIDOCAINE
     Indication: Product used for unknown indication
     Dosage: UNK
     Route: 062
     Dates: start: 20181221
  7. EMLA [Concomitant]
     Active Substance: LIDOCAINE\PRILOCAINE
     Indication: Product used for unknown indication
     Dosage: UNK
     Route: 061
     Dates: start: 20191023
  8. BACTROBAN [Concomitant]
     Active Substance: MUPIROCIN\MUPIROCIN CALCIUM
     Indication: Product used for unknown indication
     Dosage: UNK
     Route: 045
  9. PLANTAGO AFRA SEED [Concomitant]
     Active Substance: PLANTAGO AFRA SEED
     Indication: Product used for unknown indication
     Dosage: UNK
     Route: 065
     Dates: start: 20161116
  10. VENTOLIN [Concomitant]
     Active Substance: ALBUTEROL SULFATE
     Indication: Product used for unknown indication
     Dosage: UNK
     Route: 055
     Dates: start: 20140121
  11. PROAIR HFA [Concomitant]
     Active Substance: ALBUTEROL SULFATE
     Indication: Product used for unknown indication
     Dosage: UNK
     Route: 055
     Dates: start: 20140121

REACTIONS (13)
  - Infection [Recovered/Resolved]
  - Infection [Unknown]
  - Bone neoplasm [Unknown]
  - Fall [Recovered/Resolved]
  - Meniscus injury [Unknown]
  - Wound infection staphylococcal [Unknown]
  - Exostosis [Unknown]
  - Parkinsonism [Unknown]
  - Staphylococcal infection [Recovered/Resolved]
  - Arthralgia [Unknown]
  - Abdominal discomfort [Unknown]
  - Upper respiratory tract infection [Recovered/Resolved]
  - Product dose omission in error [Unknown]

NARRATIVE: CASE EVENT DATE: 20150101
